FAERS Safety Report 5555821-9 (Version None)
Quarter: 2007Q4

REPORT INFORMATION
  Report Type: 
  Country: None (occurrence: None)
  Receive Date: 20071213
  Receipt Date: 20070830
  Transmission Date: 20080405
  Serious: No
  Sender: FDA-Public Use
  Company Number: US-AMGEN-KDL240209

PATIENT
  Sex: Male

DRUGS (3)
  1. ENBREL [Suspect]
     Indication: RHEUMATOID ARTHRITIS
     Route: 058
     Dates: start: 20000501
  2. ENBREL [Suspect]
     Indication: PSORIATIC ARTHROPATHY
  3. ARAVA [Concomitant]
     Dates: start: 19991101

REACTIONS (3)
  - DEPRESSION [None]
  - FATIGUE [None]
  - MUSCULOSKELETAL PAIN [None]
